FAERS Safety Report 5616301-5 (Version None)
Quarter: 2008Q1

REPORT INFORMATION
  Report Type: 
  Country: None (occurrence: None)
  Receive Date: 20080204
  Receipt Date: 20080123
  Transmission Date: 20080703
  Serious: Yes (Death, Hospitalization)
  Sender: FDA-Public Use
  Company Number: 2007BI022102

PATIENT
  Sex: Male

DRUGS (2)
  1. ZEVALIN [Suspect]
     Indication: B-CELL LYMPHOMA
     Dosage: IV
     Route: 042
     Dates: start: 20071009, end: 20071009
  2. RITUXAN [Concomitant]

REACTIONS (3)
  - B-CELL LYMPHOMA [None]
  - DISEASE PROGRESSION [None]
  - GENERAL PHYSICAL HEALTH DETERIORATION [None]
